FAERS Safety Report 9081767 (Version 1)
Quarter: 2013Q1

REPORT INFORMATION
  Report Type: Report from Study
  Country: US (occurrence: US)
  Receive Date: 20130130
  Receipt Date: 20130130
  Transmission Date: 20140127
  Serious: Yes (Other)
  Sender: FDA-Public Use
  Company Number: US-BAXTER-2013BAX004054

PATIENT
  Sex: 0

DRUGS (1)
  1. 3% SODIUM CHLORIDE INJECTION [Suspect]
     Indication: INTRACRANIAL PRESSURE INCREASED
     Dosage: 514 MEQ/L
     Route: 042

REACTIONS (5)
  - Renal failure acute [Recovered/Resolved]
  - Sepsis [Unknown]
  - Multi-organ disorder [Recovered/Resolved]
  - Dialysis [None]
  - Blood sodium increased [None]
